FAERS Safety Report 17550571 (Version 1)
Quarter: 2020Q1

REPORT INFORMATION
  Report Type: Spontaneous
  Country: US (occurrence: US)
  Receive Date: 20200317
  Receipt Date: 20200317
  Transmission Date: 20200409
  Serious: Yes (Other)
  Sender: FDA-Public Use
  Company Number: None

PATIENT
  Sex: Male

DRUGS (1)
  1. NIFEDIPINE EXTENDED-RELEASE [Suspect]
     Active Substance: NIFEDIPINE
     Route: 048

REACTIONS (2)
  - Product substitution issue [None]
  - Blood pressure fluctuation [None]
